FAERS Safety Report 16247824 (Version 1)
Quarter: 2019Q2

REPORT INFORMATION
  Report Type: Spontaneous
  Country: DE (occurrence: DE)
  Receive Date: 20190428
  Receipt Date: 20190428
  Transmission Date: 20190711
  Serious: Yes (Hospitalization)
  Sender: FDA-Public Use
  Company Number: PHHY2019DE090941

PATIENT
  Sex: Male

DRUGS (15)
  1. DEXAMETHASONE. [Suspect]
     Active Substance: DEXAMETHASONE
     Indication: FOETAL EXPOSURE DURING PREGNANCY
     Route: 064
  2. CYCLOPHOSPHAMIDE. [Suspect]
     Active Substance: CYCLOPHOSPHAMIDE
     Indication: FOETAL EXPOSURE DURING PREGNANCY
     Dosage: UNK
     Route: 064
  3. DAUNORUBICIN [Suspect]
     Active Substance: DAUNORUBICIN
     Indication: FOETAL EXPOSURE DURING PREGNANCY
     Route: 064
  4. MERCAPTOPURIN [Suspect]
     Active Substance: MERCAPTOPURINE
     Indication: FOETAL EXPOSURE DURING PREGNANCY
     Route: 064
  5. METHOTREXATE. [Suspect]
     Active Substance: METHOTREXATE
     Dosage: UNK
     Route: 064
  6. VINDESINE [Suspect]
     Active Substance: VINDESINE
     Indication: FOETAL EXPOSURE DURING PREGNANCY
     Route: 064
  7. LEUCOVORINE [Suspect]
     Active Substance: LEUCOVORIN
     Indication: FOETAL EXPOSURE DURING PREGNANCY
     Route: 064
  8. PEGASPARGASE [Suspect]
     Active Substance: PEGASPARGASE
     Indication: FOETAL EXPOSURE DURING PREGNANCY
     Route: 064
  9. METHOTREXATE. [Suspect]
     Active Substance: METHOTREXATE
     Indication: FOETAL EXPOSURE DURING PREGNANCY
     Dosage: UNK
     Route: 064
  10. SODIUM CHLORIDE. [Suspect]
     Active Substance: SODIUM CHLORIDE
     Indication: FOETAL EXPOSURE DURING PREGNANCY
     Route: 064
  11. ETOPOSIDE. [Suspect]
     Active Substance: ETOPOSIDE
     Indication: FOETAL EXPOSURE DURING PREGNANCY
     Route: 064
  12. VINCRISTINE [Suspect]
     Active Substance: VINCRISTINE
     Indication: FOETAL EXPOSURE DURING PREGNANCY
     Route: 064
  13. MESNA. [Suspect]
     Active Substance: MESNA
     Indication: PRODUCT USED FOR UNKNOWN INDICATION
     Route: 064
  14. RITUXIMAB. [Suspect]
     Active Substance: RITUXIMAB
     Indication: FOETAL EXPOSURE DURING PREGNANCY
     Route: 064
  15. CYTARABIN [Suspect]
     Active Substance: CYTARABINE
     Indication: FOETAL EXPOSURE DURING PREGNANCY
     Route: 064

REACTIONS (2)
  - Low birth weight baby [Recovered/Resolved]
  - Foetal exposure during pregnancy [Unknown]
